FAERS Safety Report 4466247-3 (Version None)
Quarter: 2004Q4

REPORT INFORMATION
  Report Type: 
  Country: None (occurrence: None)
  Receive Date: 20041005
  Receipt Date: 20040930
  Transmission Date: 20050328
  Serious: Yes (Hospitalization)
  Sender: FDA-Public Use
  Company Number: US-JNJFOC-20041000357

PATIENT
  Sex: Female

DRUGS (9)
  1. INFLIXIMAB [Suspect]
     Indication: RHEUMATOID ARTHRITIS
     Route: 042
     Dates: start: 20011105, end: 20030601
  2. ARAVA [Concomitant]
  3. AZULFIDINE [Concomitant]
  4. CLONIDINE HCL [Concomitant]
  5. FOLIC ACID [Concomitant]
  6. METHOTREXATE [Concomitant]
  7. PEPCID [Concomitant]
  8. PREDNISONE [Concomitant]
  9. TUMS [Concomitant]

REACTIONS (5)
  - CHEST PAIN [None]
  - CORONARY ARTERY DISEASE [None]
  - HYPERCHOLESTEROLAEMIA [None]
  - LOW DENSITY LIPOPROTEIN INCREASED [None]
  - PALPITATIONS [None]
